FAERS Safety Report 14154653 (Version 4)
Quarter: 2018Q4

REPORT INFORMATION
  Report Type: Spontaneous
  Country: FR (occurrence: FR)
  Receive Date: 20171102
  Receipt Date: 20181210
  Transmission Date: 20190204
  Serious: Yes (Hospitalization, Other)
  Sender: FDA-Public Use
  Company Number: FR-009507513-1711FRA000963

PATIENT
  Age: 69 Year
  Sex: Male
  Weight: 121 kg

DRUGS (11)
  1. ZYVOXID [Concomitant]
     Active Substance: LINEZOLID
     Dosage: 600 MG, 2X/DAY
     Route: 042
     Dates: start: 20170918, end: 20170919
  2. ALBUTEROL SULFATE. [Concomitant]
     Active Substance: ALBUTEROL SULFATE
     Dosage: UNK
     Route: 048
  3. CAPTOPRIL. [Concomitant]
     Active Substance: CAPTOPRIL
     Dosage: 12,5 MG, DAILY
     Route: 048
  4. ALLOPURINOL. [Concomitant]
     Active Substance: ALLOPURINOL
     Dosage: 100 MG DAILY
     Route: 048
  5. BISOPROLOL [Concomitant]
     Active Substance: BISOPROLOL
     Dosage: 1.25 MG, DAILY
     Route: 048
  6. CUBICIN [Suspect]
     Active Substance: DAPTOMYCIN
     Indication: INFECTION
     Dosage: 1200 MG, DAILY
     Route: 042
     Dates: start: 20170919, end: 20170926
  7. BUMETANIDE. [Concomitant]
     Active Substance: BUMETANIDE
     Dosage: 1 MG, 2X/DAY
     Route: 048
  8. KARDEGIC [Concomitant]
     Active Substance: ASPIRIN DL-LYSINE
     Dosage: 75 MG, DAILY
     Route: 048
  9. SYMBICORT [Concomitant]
     Active Substance: BUDESONIDE\FORMOTEROL FUMARATE DIHYDRATE
     Dosage: UNK
     Route: 055
  10. CEFTAROLINE FOSAMIL ACETATE [Suspect]
     Active Substance: CEFTAROLINE FOSAMIL
     Indication: INFECTION
     Dosage: 600 MG, TID
     Route: 042
     Dates: start: 20170921, end: 20170926
  11. SPIRIVA [Concomitant]
     Active Substance: TIOTROPIUM BROMIDE MONOHYDRATE
     Dosage: UNK
     Route: 055

REACTIONS (2)
  - Toxic skin eruption [Not Recovered/Not Resolved]
  - Purpura [Not Recovered/Not Resolved]

NARRATIVE: CASE EVENT DATE: 20170926
